FAERS Safety Report 21438823 (Version 1)
Quarter: 2022Q4

REPORT INFORMATION
  Report Type: Spontaneous
  Country: US (occurrence: US)
  Receive Date: 20221011
  Receipt Date: 20221011
  Transmission Date: 20230113
  Serious: No
  Sender: FDA-Public Use
  Company Number: US-BIOGEN-2022BI01136885

PATIENT
  Sex: Female
  Weight: 57.204 kg

DRUGS (2)
  1. TYSABRI [Suspect]
     Active Substance: NATALIZUMAB
     Indication: Multiple sclerosis
     Route: 050
     Dates: start: 20220411
  2. TYSABRI [Suspect]
     Active Substance: NATALIZUMAB
     Dosage: INFUSION OVER 1 HOUR
     Route: 050

REACTIONS (2)
  - Hypersensitivity [Unknown]
  - Infusion related reaction [Unknown]

NARRATIVE: CASE EVENT DATE: 20220101
